FAERS Safety Report 22289636 (Version 2)
Quarter: 2024Q2

REPORT INFORMATION
  Report Type: Other
  Country: US (occurrence: None)
  Receive Date: 20230505
  Receipt Date: 20240502
  Transmission Date: 20240716
  Serious: Yes (Other)
  Sender: FDA-Public Use
  Company Number: US-ROCHE-3325855

PATIENT
  Age: 31 Year
  Sex: Male

DRUGS (1)
  1. HEMLIBRA [Suspect]
     Active Substance: EMICIZUMAB-KXWH
     Indication: Prophylaxis
     Dosage: DOSAGE HAD CHANGED FROM ONCE EVERY 2 WEEKS TO ONCE EVERY WEEK
     Route: 065

REACTIONS (5)
  - Headache [Unknown]
  - Migraine [Unknown]
  - Off label use [Unknown]
  - Contusion [Unknown]
  - Fall [Unknown]
